FAERS Safety Report 15269806 (Version 1)
Quarter: 2018Q3

REPORT INFORMATION
  Report Type: Spontaneous
  Country: DE (occurrence: DE)
  Receive Date: 20180813
  Receipt Date: 20180813
  Transmission Date: 20181010
  Serious: Yes (Other)
  Sender: FDA-Public Use
  Company Number: DE-CONCORDIA PHARMACEUTICALS INC.-E2B_00015973

PATIENT
  Sex: Female

DRUGS (1)
  1. PREDNISOLONE. [Suspect]
     Active Substance: PREDNISOLONE
     Indication: ORGANISING PNEUMONIA
     Dosage: ANGEFANGEN MIT 60MG,INZWISCHEN 20MG, WELCHES NOCH WEITER REDUZIERT WERDEN SOLL
     Dates: start: 201805

REACTIONS (14)
  - Lenticular opacities [Unknown]
  - Vision blurred [Unknown]
  - Haemorrhage [Unknown]
  - Dermatitis [Unknown]
  - Skin candida [Unknown]
  - Retinal disorder [Unknown]
  - Skin haemorrhage [Unknown]
  - Sleep disorder [Unknown]
  - Depressed mood [Unknown]
  - Glaucoma [Unknown]
  - Haematoma [Unknown]
  - Ocular hypertension [Unknown]
  - Skin discomfort [Unknown]
  - Irritability [Unknown]
